FAERS Safety Report 24703448 (Version 2)
Quarter: 2024Q4

REPORT INFORMATION
  Report Type: Spontaneous
  Country: US (occurrence: US)
  Receive Date: 20241205
  Receipt Date: 20241231
  Transmission Date: 20250115
  Serious: No
  Sender: ABBVIE
  Company Number: US-ABBVIE-6025804

PATIENT
  Age: 37 Year
  Sex: Female

DRUGS (3)
  1. BOTOX [Suspect]
     Active Substance: ONABOTULINUMTOXINA
     Indication: Headache
     Dosage: TIME INTERVAL: AS NECESSARY: 155 UNIT?LAST ADMIN DATE:2024
     Route: 065
     Dates: start: 2024, end: 2024
  2. BOTOX [Suspect]
     Active Substance: ONABOTULINUMTOXINA
     Indication: Headache
     Dosage: TIME INTERVAL: AS NECESSARY
     Route: 065
     Dates: start: 2024, end: 2024
  3. BOTOX [Suspect]
     Active Substance: ONABOTULINUMTOXINA
     Indication: Headache
     Dosage: TIME INTERVAL: AS NECESSARY: 155 UNIT?LAST ADMIN DATE:2024
     Route: 065
     Dates: start: 2024, end: 2024

REACTIONS (9)
  - Sinusitis bacterial [Unknown]
  - Temporomandibular pain and dysfunction syndrome [Recovering/Resolving]
  - Food allergy [Recovering/Resolving]
  - Mastication disorder [Recovering/Resolving]
  - Ear pain [Recovering/Resolving]
  - Myalgia [Unknown]
  - Facial pain [Unknown]
  - Ear discomfort [Unknown]
  - Toothache [Unknown]

NARRATIVE: CASE EVENT DATE: 20240101
